FAERS Safety Report 9913393 (Version 1)
Quarter: 2014Q1

REPORT INFORMATION
  Report Type: Report from Study
  Country: DE (occurrence: DE)
  Receive Date: 20140220
  Receipt Date: 20140220
  Transmission Date: 20141002
  Serious: Yes (Hospitalization)
  Sender: FDA-Public Use
  Company Number: DE-UCBSA-112971

PATIENT
  Age: 60 Year
  Sex: Female
  Weight: 71 kg

DRUGS (4)
  1. LEGANTO [Suspect]
     Indication: RESTLESS LEGS SYNDROME
     Dosage: 3 MG/24 HR ONCE DAILY
     Route: 062
     Dates: start: 201301
  2. TILIDIN [Concomitant]
     Indication: PAIN
     Dosage: 50/4 MG ONCE DAILY
     Route: 048
  3. PANTOPRAZOLE [Concomitant]
     Indication: GASTROOESOPHAGEAL REFLUX DISEASE
     Route: 048
  4. VITAMIN B COMPLEX [Concomitant]
     Indication: VITAMIN SUPPLEMENTATION

REACTIONS (2)
  - Nervous system disorder [Unknown]
  - Gastric disorder [Unknown]
